FAERS Safety Report 6654618-6 (Version None)
Quarter: 2010Q1

REPORT INFORMATION
  Report Type: 
  Country: None (occurrence: None)
  Receive Date: 20100326
  Receipt Date: 20100318
  Transmission Date: 20100710
  Serious: Yes (Hospitalization, Other)
  Sender: FDA-Public Use
  Company Number: BR-ABBOTT-09P-020-0602851-00

PATIENT
  Sex: Female
  Weight: 78 kg

DRUGS (27)
  1. HUMIRA [Suspect]
     Indication: RHEUMATOID ARTHRITIS
     Route: 058
     Dates: start: 20090201, end: 20090901
  2. CYMBALTA [Concomitant]
     Indication: DEPRESSION
     Route: 048
     Dates: start: 20080101
  3. SERTRALINE HCL [Concomitant]
     Indication: DEPRESSION
     Route: 048
     Dates: start: 20080101
  4. ALPRAZOLAM [Concomitant]
     Indication: DEPRESSION
     Route: 048
     Dates: start: 20070101
  5. GABAPENTIN [Concomitant]
     Indication: PROPHYLAXIS
     Route: 048
     Dates: start: 20080801
  6. GABAPENTIN [Concomitant]
     Indication: BONE MARROW DISORDER
  7. GABAPENTIN [Concomitant]
     Indication: EPILEPSY
  8. GABAPENTIN [Concomitant]
  9. NUCLEO C.M.P. [Concomitant]
     Indication: PROPHYLAXIS
     Route: 048
     Dates: start: 20080801, end: 20091001
  10. NUCLEO C.M.P. [Concomitant]
     Indication: SPINAL CORD INJURY
  11. CITONEURIN [Concomitant]
     Indication: SEDATIVE THERAPY
     Route: 048
     Dates: start: 20080801
  12. CITONEURIN [Concomitant]
     Indication: VITAMIN SUPPLEMENTATION
  13. TRAMAL [Concomitant]
     Indication: PAIN
     Route: 048
     Dates: start: 20080801
  14. TRAMAL [Concomitant]
     Indication: TENSION
  15. BACLOFEN [Concomitant]
     Indication: PAIN
     Route: 048
     Dates: start: 20080801
  16. BACLOFEN [Concomitant]
     Indication: TENSION
     Route: 048
     Dates: start: 20090701
  17. BACLOFEN [Concomitant]
     Indication: RHEUMATOID ARTHRITIS
  18. HYGROTON [Concomitant]
     Indication: BLADDER DISORDER
     Route: 048
     Dates: start: 20080801
  19. HYGROTON [Concomitant]
     Indication: FLUID RETENTION
  20. OMEPRAZOLE [Concomitant]
     Indication: GASTRIC DISORDER
     Route: 048
  21. ISOCONAZOLE [Concomitant]
     Indication: FUNGAL INFECTION
  22. TRAMADOL HCL [Concomitant]
     Indication: RHEUMATOID ARTHRITIS
     Dosage: 37.5MG
     Route: 048
     Dates: start: 20090701
  23. PROZEN [Concomitant]
     Indication: DEPRESSION
     Route: 048
     Dates: start: 20090101
  24. COLPLAN [Concomitant]
     Indication: DEPRESSION
     Route: 048
     Dates: start: 20090101
  25. METHOTREXATE [Concomitant]
     Indication: RHEUMATOID ARTHRITIS
     Route: 058
     Dates: start: 20090101, end: 20090901
  26. PARACETAMOL [Concomitant]
     Indication: PAIN
     Route: 048
     Dates: start: 20090101
  27. BACLOFEN [Concomitant]
     Route: 048
     Dates: start: 20080101

REACTIONS (15)
  - ARTHRITIS BACTERIAL [None]
  - BLOOD CHOLESTEROL INCREASED [None]
  - BONE DISORDER [None]
  - FLUID RETENTION [None]
  - FUNGAL SKIN INFECTION [None]
  - HAEMATOMA [None]
  - HAEMORRHAGE [None]
  - INJECTION SITE ERYTHEMA [None]
  - INJECTION SITE PRURITUS [None]
  - INJECTION SITE WARMTH [None]
  - MENORRHAGIA [None]
  - NECROSIS [None]
  - NODULE [None]
  - STAPHYLOCOCCAL INFECTION [None]
  - UTERINE LEIOMYOMA [None]
